FAERS Safety Report 8324276 (Version 5)
Quarter: 2013Q3

REPORT INFORMATION
  Report Type: Spontaneous
  Country: US (occurrence: US)
  Receive Date: 20120106
  Receipt Date: 20130715
  Transmission Date: 20140515
  Serious: No
  Sender: FDA-Public Use
  Company Number: US-BIOGENIDEC-2011BI048903

PATIENT
  Age: 20 Year
  Sex: Female

DRUGS (1)
  1. TYSABRI [Suspect]
     Indication: MULTIPLE SCLEROSIS
     Route: 042
     Dates: start: 20110718, end: 201304

REACTIONS (7)
  - Polymenorrhoea [Recovered/Resolved]
  - Genital hypoaesthesia [Recovered/Resolved]
  - Breast discharge [Unknown]
  - Muscular weakness [Not Recovered/Not Resolved]
  - Pruritus [Not Recovered/Not Resolved]
  - Chest pain [Recovered/Resolved]
  - Pruritus generalised [Recovered/Resolved]
